FAERS Safety Report 24109012 (Version 1)
Quarter: 2024Q3

REPORT INFORMATION
  Report Type: Spontaneous
  Country: PL (occurrence: PL)
  Receive Date: 20240718
  Receipt Date: 20240718
  Transmission Date: 20241016
  Serious: Yes (Other)
  Sender: AMGEN
  Company Number: PL-AMGEN-POLSP2024139016

PATIENT
  Age: 45 Year
  Sex: Male

DRUGS (2)
  1. PANITUMUMAB [Suspect]
     Active Substance: PANITUMUMAB
     Indication: Adenocarcinoma
     Dosage: UNK
     Route: 065
  2. PANITUMUMAB [Suspect]
     Active Substance: PANITUMUMAB
     Dosage: UNK, FROM THE 6TH CYCLE, RETURN TO THE FULL DOSE OF THE DRUG
     Route: 065

REACTIONS (2)
  - Neutropenia [Unknown]
  - Skin toxicity [Recovering/Resolving]
